FAERS Safety Report 4756670-1 (Version None)
Quarter: 2005Q3

REPORT INFORMATION
  Report Type: 
  Country: None (occurrence: None)
  Receive Date: 20050830
  Receipt Date: 20050829
  Transmission Date: 20060218
  Serious: Yes (Life-Threatening)
  Sender: FDA-Public Use
  Company Number: JPKYO-S-20050019

PATIENT
  Age: 56 Year
  Sex: Female

DRUGS (9)
  1. NAVELBINE [Suspect]
     Route: 042
     Dates: start: 20050607, end: 20050704
  2. GEMZAR [Suspect]
     Route: 042
     Dates: start: 20050607, end: 20050704
  3. SELBEX [Concomitant]
     Dates: start: 20050421
  4. NAUZELIN [Concomitant]
     Dates: start: 20050421
  5. GASTER [Concomitant]
     Dates: start: 20050502
  6. CODEINE PHOSPHATE [Concomitant]
     Dates: start: 20050429
  7. MAGLAX [Concomitant]
     Dates: start: 20050418
  8. DEPAKENE [Concomitant]
     Dates: start: 20050502
  9. DECADRON [Concomitant]
     Dates: start: 20050601

REACTIONS (2)
  - HYPOXIA [None]
  - INTERSTITIAL LUNG DISEASE [None]
